FAERS Safety Report 12405539 (Version 1)
Quarter: 2016Q2

REPORT INFORMATION
  Report Type: Spontaneous
  Country: None (occurrence: None)
  Receive Date: 20160525
  Receipt Date: 20160525
  Transmission Date: 20160815
  Serious: No
  Sender: FDA-Public Use
  Company Number: None

PATIENT
  Sex: Female

DRUGS (2)
  1. GLIPIZIDE. [Suspect]
     Active Substance: GLIPIZIDE
  2. JANUMET [Suspect]
     Active Substance: METFORMIN HYDROCHLORIDE\SITAGLIPTIN PHOSPHATE

REACTIONS (8)
  - Glycosylated haemoglobin increased [None]
  - Stress [None]
  - Abasia [None]
  - Hallucination [None]
  - Urticaria [None]
  - Memory impairment [None]
  - Nephrolithiasis [None]
  - Gout [None]
